FAERS Safety Report 26054177 (Version 1)
Quarter: 2025Q4

REPORT INFORMATION
  Report Type: Spontaneous
  Country: JP (occurrence: JP)
  Receive Date: 20251117
  Receipt Date: 20251117
  Transmission Date: 20260117
  Serious: Yes (Other)
  Sender: PFIZER
  Company Number: JP-PFIZER INC-PV202500132913

PATIENT
  Age: 62 Year
  Sex: Male

DRUGS (4)
  1. HEPARIN SODIUM [Suspect]
     Active Substance: HEPARIN SODIUM
     Indication: Anticoagulant therapy
     Dosage: 2X10^4 UNITS/DAY
  2. WARFARIN SODIUM [Suspect]
     Active Substance: WARFARIN SODIUM
     Indication: Anticoagulant therapy
     Dosage: 4 MG, 1X/DAY
  3. DIPYRIDAMOLE [Suspect]
     Active Substance: DIPYRIDAMOLE
     Indication: Anticoagulant therapy
     Dosage: 300 MG, 1X/DAY
  4. UROKINASE [Concomitant]
     Active Substance: UROKINASE
     Dosage: 24X10^4 UNITS

REACTIONS (1)
  - Skin lesion [Unknown]
